FAERS Safety Report 23982589 (Version 1)
Quarter: 2024Q2

REPORT INFORMATION
  Report Type: Spontaneous
  Country: FR (occurrence: FR)
  Receive Date: 20240617
  Receipt Date: 20240617
  Transmission Date: 20240715
  Serious: Yes (Other)
  Sender: FDA-Public Use
  Company Number: None

PATIENT
  Age: 85 Year
  Sex: Female
  Weight: 52 kg

DRUGS (2)
  1. LEVOFLOXACIN [Suspect]
     Active Substance: LEVOFLOXACIN
     Indication: Sepsis
     Route: 048
     Dates: start: 20230801, end: 20231017
  2. RIFAMPIN [Suspect]
     Active Substance: RIFAMPIN
     Indication: Sepsis
     Route: 048
     Dates: start: 20230801, end: 20231017

REACTIONS (3)
  - Electrocardiogram QT prolonged [Recovered/Resolved]
  - Dysgeusia [Recovered/Resolved]
  - Decreased appetite [Recovered/Resolved]

NARRATIVE: CASE EVENT DATE: 20230818
